FAERS Safety Report 5355775-4 (Version None)
Quarter: 2007Q2

REPORT INFORMATION
  Report Type: 
  Country: None (occurrence: None)
  Receive Date: 20070611
  Receipt Date: 20070611
  Transmission Date: 20071010
  Serious: Yes (Hospitalization)
  Sender: FDA-Public Use
  Company Number: None

PATIENT
  Sex: Male
  Weight: 66 kg

DRUGS (3)
  1. OXALIPLATIN [Suspect]
     Indication: PROSTATE CANCER
     Dosage: 94 MG/M^2 Q 21 DAYS IV
     Route: 042
     Dates: start: 20070417
  2. PEMETREXED [Suspect]
     Indication: PROSTATE CANCER
     Dosage: 376 MG/M^2 Q 21 DAYS IV
     Route: 042
     Dates: start: 20070417
  3. METFORMIN HCL [Concomitant]

REACTIONS (3)
  - CEREBRAL ATROPHY [None]
  - CONFUSIONAL STATE [None]
  - MENTAL STATUS CHANGES [None]
